FAERS Safety Report 25128565 (Version 1)
Quarter: 2025Q1

REPORT INFORMATION
  Report Type: Spontaneous
  Country: PT (occurrence: PT)
  Receive Date: 20250327
  Receipt Date: 20250327
  Transmission Date: 20250409
  Serious: Yes (Other)
  Sender: AUROBINDO
  Company Number: PT-AUROBINDO-AUR-APL-2025-000659

PATIENT
  Age: 7 Month

DRUGS (5)
  1. PREDNISOLONE [Suspect]
     Active Substance: PREDNISOLONE
     Indication: Infantile spasms
     Dosage: 5 MILLIGRAM/KILOGRAM, ONCE A DAY
     Route: 065
  2. VIGABATRIN [Suspect]
     Active Substance: VIGABATRIN
     Indication: Infantile spasms
     Dosage: 65 MILLIGRAM/KILOGRAM, ONCE A DAY
     Route: 065
  3. VIGABATRIN [Suspect]
     Active Substance: VIGABATRIN
     Dosage: 100 MILLIGRAM/KILOGRAM, ONCE A DAY
     Route: 065
  4. VIGABATRIN [Suspect]
     Active Substance: VIGABATRIN
     Dosage: 120 MILLIGRAM/KILOGRAM, ONCE A DAY
     Route: 065
  5. CORTICOTROPIN [Suspect]
     Active Substance: CORTICOTROPIN
     Indication: Infantile spasms
     Route: 030

REACTIONS (1)
  - Drug ineffective [Unknown]
